FAERS Safety Report 10412703 (Version 1)
Quarter: 2014Q3

REPORT INFORMATION
  Report Type: Spontaneous
  Country: US (occurrence: None)
  Receive Date: 20140825
  Receipt Date: 20140825
  Transmission Date: 20150326
  Serious: Yes (Death, Hospitalization)
  Sender: FDA-Public Use
  Company Number: US-H14001-14-00389

PATIENT
  Age: 67 Year
  Sex: Male

DRUGS (1)
  1. RISPERIDONE. [Suspect]
     Active Substance: RISPERIDONE
     Indication: SCHIZOPHRENIA

REACTIONS (8)
  - Pancytopenia [None]
  - Delirium [None]
  - Stupor [None]
  - Respiratory rate increased [None]
  - Blood creatinine increased [None]
  - Hypothermia [None]
  - Hyporesponsive to stimuli [None]
  - Pleural effusion [None]
